FAERS Safety Report 15715098 (Version 2)
Quarter: 2018Q4

REPORT INFORMATION
  Report Type: Report from Study
  Country: US (occurrence: US)
  Receive Date: 20181212
  Receipt Date: 20181228
  Transmission Date: 20190205
  Serious: Yes (Death, Other)
  Sender: FDA-Public Use
  Company Number: US-GILEAD-2018-0379629

PATIENT
  Age: 91 Year
  Sex: Male

DRUGS (1)
  1. RANOLAZINE. [Suspect]
     Active Substance: RANOLAZINE
     Indication: ANGINA PECTORIS
     Dosage: 500 MG, BID
     Route: 048
     Dates: start: 20180523, end: 20181118

REACTIONS (4)
  - Death [Fatal]
  - Hepatic cancer [Fatal]
  - Leukaemia [Fatal]
  - Metastases to larynx [Fatal]

NARRATIVE: CASE EVENT DATE: 20181118
